FAERS Safety Report 7807565-8 (Version None)
Quarter: 2011Q4

REPORT INFORMATION
  Report Type: 
  Country: None (occurrence: None)
  Receive Date: 20111011
  Receipt Date: 20111007
  Transmission Date: 20120403
  Serious: Yes (Hospitalization)
  Sender: FDA-Public Use
  Company Number: DE-GLAXOSMITHKLINE-D0072644A

PATIENT
  Sex: Female
  Weight: 50 kg

DRUGS (6)
  1. MOVIPREP [Concomitant]
     Indication: CONSTIPATION
     Dosage: 1BAG PER DAY
     Route: 048
  2. TOPOTECAN [Suspect]
     Indication: METASTASES TO OVARY
     Dosage: 1.86MG PER DAY
     Route: 042
     Dates: start: 20110902, end: 20110905
  3. SIMVASTATIN [Concomitant]
     Route: 065
  4. LACTULOSE [Concomitant]
     Indication: CONSTIPATION
     Route: 048
  5. INNOHEP [Concomitant]
     Indication: THROMBOSIS PROPHYLAXIS
     Dosage: 9000IU PER DAY
     Route: 058
  6. ZOFRAN [Concomitant]
     Indication: PROPHYLAXIS OF NAUSEA AND VOMITING
     Dosage: 8MG PER DAY
     Route: 065
     Dates: start: 20110902, end: 20110906

REACTIONS (8)
  - HEADACHE [None]
  - NEUROTOXICITY [None]
  - DELIRIUM [None]
  - DISTURBANCE IN ATTENTION [None]
  - MENTAL DISORDER DUE TO A GENERAL MEDICAL CONDITION [None]
  - NEUROLOGICAL SYMPTOM [None]
  - APHASIA [None]
  - DISORIENTATION [None]
